FAERS Safety Report 9848143 (Version 1)
Quarter: 2013Q4

REPORT INFORMATION
  Report Type: Spontaneous
  Country: US (occurrence: None)
  Receive Date: 20131223
  Receipt Date: 20131223
  Transmission Date: 20140711
  Serious: No
  Sender: FDA-Public Use
  Company Number: 1000050855

PATIENT
  Age: 71 Year
  Sex: Female

DRUGS (1)
  1. LINZESS [Suspect]
     Indication: IRRITABLE BOWEL SYNDROME
     Dosage: 290MCG (290 MCG, 1 IN 1 D), ORAL
     Route: 048
     Dates: start: 20131106

REACTIONS (2)
  - Abdominal pain [None]
  - Abdominal distension [None]
